FAERS Safety Report 5853205-7 (Version None)
Quarter: 2008Q3

REPORT INFORMATION
  Report Type: 
  Country: None (occurrence: None)
  Receive Date: 20080821
  Receipt Date: 20080815
  Transmission Date: 20090109
  Serious: Yes (Other)
  Sender: FDA-Public Use
  Company Number: DE-ABBOTT-08P-062-0470751-00

PATIENT
  Sex: Male
  Weight: 60 kg

DRUGS (2)
  1. KALETRA [Suspect]
     Indication: HIV INFECTION
     Dosage: 200/50 MG
     Route: 048
     Dates: start: 20080424
  2. EMTRICITABINE [Suspect]
     Indication: HIV INFECTION
     Dosage: 200/245 MG ONCE DAILY
     Route: 048
     Dates: start: 20080424

REACTIONS (1)
  - CEREBROVASCULAR ACCIDENT [None]
